FAERS Safety Report 25691166 (Version 1)
Quarter: 2025Q3

REPORT INFORMATION
  Report Type: Spontaneous
  Country: US (occurrence: None)
  Receive Date: 20250818
  Receipt Date: 20250818
  Transmission Date: 20251020
  Serious: Yes (Other)
  Sender: FDA-CTU
  Company Number: None

PATIENT
  Age: 53 Year
  Sex: Female
  Weight: 106.2 kg

DRUGS (8)
  1. OZEMPIC [Suspect]
     Active Substance: SEMAGLUTIDE
     Indication: Type 2 diabetes mellitus
     Route: 058
  2. LEVOTHYROXINE [Concomitant]
     Active Substance: LEVOTHYROXINE
  3. LAMICTAL [Concomitant]
     Active Substance: LAMOTRIGINE
  4. SERTRALINE [Concomitant]
     Active Substance: SERTRALINE HYDROCHLORIDE
  5. VALSARTAN [Concomitant]
     Active Substance: VALSARTAN
  6. FAMOTIDINE [Concomitant]
     Active Substance: FAMOTIDINE
  7. protocol [Concomitant]
  8. ZYRTEC [Concomitant]
     Active Substance: CETIRIZINE HYDROCHLORIDE

REACTIONS (17)
  - Respiratory tract infection [None]
  - Gastrooesophageal reflux disease [None]
  - Aspiration [None]
  - Dysphonia [None]
  - Sensation of foreign body [None]
  - Dysphagia [None]
  - Sleep disorder [None]
  - Choking [None]
  - Dyspnoea [None]
  - Ear, nose and throat disorder [None]
  - Oesophageal disorder [None]
  - Laryngeal disorder [None]
  - Nausea [None]
  - Hypophagia [None]
  - Weight decreased [None]
  - Abdominal pain upper [None]
  - Impaired gastric emptying [None]

NARRATIVE: CASE EVENT DATE: 20250301
